FAERS Safety Report 21175591 (Version 1)
Quarter: 2022Q3

REPORT INFORMATION
  Report Type: Spontaneous
  Country: CA (occurrence: CA)
  Receive Date: 20220805
  Receipt Date: 20220805
  Transmission Date: 20221027
  Serious: Yes (Other)
  Sender: FDA-Public Use
  Company Number: CA-AUROBINDO-AUR-APL-2022-030194

PATIENT
  Age: 17 Year
  Sex: Female

DRUGS (2)
  1. LIDOCAINE [Suspect]
     Active Substance: LIDOCAINE
     Indication: Product used for unknown indication
     Dosage: UNK
     Route: 065
  2. PRECEDEX [Concomitant]
     Active Substance: DEXMEDETOMIDINE HYDROCHLORIDE
     Indication: Lumbar puncture
     Dosage: UNK
     Route: 045

REACTIONS (7)
  - Altered state of consciousness [Unknown]
  - Dizziness [Unknown]
  - Drug-disease interaction [Unknown]
  - Hypoacusis [Unknown]
  - Hypotension [Unknown]
  - Pallor [Unknown]
  - Vision blurred [Unknown]
